FAERS Safety Report 20040798 (Version 2)
Quarter: 2022Q1

REPORT INFORMATION
  Report Type: Spontaneous
  Country: US (occurrence: US)
  Receive Date: 20211107
  Receipt Date: 20220105
  Transmission Date: 20220423
  Serious: Yes (Other)
  Sender: FDA-Public Use
  Company Number: US-REGENERON PHARMACEUTICALS, INC.-2021-99286

PATIENT

DRUGS (1)
  1. EYLEA [Suspect]
     Active Substance: AFLIBERCEPT
     Indication: Diabetic retinopathy
     Dosage: UNK, MONTHLY(ONCE A MONTH, LEFT EYE)
     Route: 042
     Dates: start: 202102

REACTIONS (4)
  - Eye haemorrhage [Recovering/Resolving]
  - Eye irritation [Recovering/Resolving]
  - Incorrect route of product administration [Unknown]
  - Eye pain [Unknown]
